FAERS Safety Report 24689420 (Version 2)
Quarter: 2025Q2

REPORT INFORMATION
  Report Type: Report from Study
  Country: US (occurrence: US)
  Receive Date: 20241203
  Receipt Date: 20250409
  Transmission Date: 20250717
  Serious: Yes (Hospitalization)
  Sender: AMNEAL
  Company Number: US-AMNEAL PHARMACEUTICALS-2024-AMRX-04361

PATIENT
  Sex: Male

DRUGS (3)
  1. CARBIDOPA\LEVODOPA [Suspect]
     Active Substance: CARBIDOPA\LEVODOPA
     Indication: Parkinson^s disease
     Dosage: 3 CAPSULES, (36.25-145MG) 3 /DAY
     Route: 048
     Dates: start: 20240328
  2. LUTEIN [Concomitant]
     Active Substance: LUTEIN
     Indication: Macular degeneration
     Route: 065
  3. MINERALS\VITAMINS [Concomitant]
     Active Substance: MINERALS\VITAMINS
     Indication: Macular degeneration
     Route: 065

REACTIONS (4)
  - Abdominal discomfort [Unknown]
  - Pneumonia [Recovered/Resolved]
  - Gait disturbance [Recovered/Resolved]
  - Therapy interrupted [Unknown]
